FAERS Safety Report 7381396-8 (Version None)
Quarter: 2011Q1

REPORT INFORMATION
  Report Type: 
  Country: None (occurrence: None)
  Receive Date: 20110321
  Receipt Date: 20110310
  Transmission Date: 20110831
  Serious: Yes (Hospitalization)
  Sender: FDA-Public Use
  Company Number: DKLU1068969

PATIENT
  Age: 36 Year
  Sex: Female

DRUGS (7)
  1. VINCRISTINE [Suspect]
     Indication: OVARIAN GERM CELL CANCER
  2. COSMEGEN [Suspect]
     Indication: OVARIAN GERM CELL CANCER
  3. CISPLATIN (CISPLATIN) (20 MG/M2) [Suspect]
     Indication: OVARIAN GERM CELL CANCER
  4. ETOPOSIDE [Suspect]
     Indication: OVARIAN GERM CELL CANCER
  5. METHOTREXATE [Suspect]
     Indication: OVARIAN GERM CELL CANCER
  6. CYCLOPHOSPHAMIDE [Suspect]
     Indication: OVARIAN GERM CELL CANCER
  7. BLEOMYCIN SULFATE [Suspect]
     Indication: OVARIAN GERM CELL CANCER

REACTIONS (18)
  - HYPOTENSION [None]
  - BLOOD HUMAN CHORIONIC GONADOTROPIN INCREASED [None]
  - PLEURAL EFFUSION [None]
  - PYREXIA [None]
  - PNEUMOTHORAX [None]
  - ALTERED STATE OF CONSCIOUSNESS [None]
  - DYSPNOEA [None]
  - NEUTROPENIA [None]
  - NYSTAGMUS [None]
  - INTESTINAL OBSTRUCTION [None]
  - HYPOKALAEMIA [None]
  - ENCEPHALITIS VIRAL [None]
  - TUBERCULOSIS OF CENTRAL NERVOUS SYSTEM [None]
  - FALL [None]
  - GENERAL PHYSICAL HEALTH DETERIORATION [None]
  - MENINGISM [None]
  - METASTASES TO CENTRAL NERVOUS SYSTEM [None]
  - NEUTROPENIC SEPSIS [None]
